FAERS Safety Report 7267153-1 (Version None)
Quarter: 2011Q1

REPORT INFORMATION
  Report Type: 
  Country: None (occurrence: None)
  Receive Date: 20110201
  Receipt Date: 20110120
  Transmission Date: 20110831
  Serious: Yes (Other)
  Sender: FDA-Public Use
  Company Number: JP-ELI_LILLY_AND_COMPANY-JP201101005420

PATIENT
  Age: 43 Year
  Sex: Female

DRUGS (11)
  1. LASIX [Concomitant]
     Indication: PULMONARY ARTERIAL HYPERTENSION
     Route: 048
  2. WARFARIN [Concomitant]
     Dosage: 5 MG, DAILY (1/D)
     Route: 048
  3. FLUITRAN [Concomitant]
     Indication: PULMONARY ARTERIAL HYPERTENSION
     Dosage: 0.5 MG, DAILY (1/D)
     Route: 048
  4. GASTER [Concomitant]
     Dosage: 40 MG, DAILY (1/D)
     Route: 048
  5. FLOLAN [Concomitant]
     Indication: PULMONARY ARTERIAL HYPERTENSION
     Dosage: UNK, DAILY (1/D)
     Route: 042
     Dates: start: 20070427
  6. FERROUS CITRATE [Concomitant]
     Dosage: 200 MG, DAILY (1/D)
     Route: 048
  7. TRACLEER [Concomitant]
     Indication: PULMONARY ARTERIAL HYPERTENSION
     Dosage: 125 MG, DAILY (1/D)
     Route: 048
     Dates: start: 20051201
  8. ALDACTONE [Concomitant]
     Indication: PULMONARY ARTERIAL HYPERTENSION
     Dosage: 50 MG, DAILY (1/D)
     Route: 048
  9. SLOW-K [Concomitant]
     Indication: HYPOKALAEMIA
     Dosage: 3.6 G, UNK
  10. TADALAFIL [Suspect]
     Indication: PULMONARY ARTERIAL HYPERTENSION
     Dosage: 40 MG, DAILY (1/D)
     Route: 048
     Dates: start: 20100526, end: 20100715
  11. ZYLORIC [Concomitant]
     Dosage: 100 MG, DAILY (1/D)
     Route: 048

REACTIONS (1)
  - RIGHT VENTRICULAR FAILURE [None]
